FAERS Safety Report 21862430 (Version 1)
Quarter: 2023Q1

REPORT INFORMATION
  Report Type: Spontaneous
  Country: CN (occurrence: CN)
  Receive Date: 20230114
  Receipt Date: 20230114
  Transmission Date: 20230417
  Serious: Yes (Other)
  Sender: FDA-Public Use
  Company Number: CN-009507513-2301CHN004548

PATIENT
  Age: 78 Year
  Sex: Female

DRUGS (2)
  1. SITAGLIPTIN PHOSPHATE [Suspect]
     Active Substance: SITAGLIPTIN PHOSPHATE
     Indication: Blood glucose abnormal
     Dosage: ONE 100 MG TABLET EACH TIME, ONCE A DAY
     Route: 048
  2. ACARBOSE [Suspect]
     Active Substance: ACARBOSE
     Indication: Blood glucose abnormal
     Dosage: ONE 50 MG TABLET EACH TIME, THREE TIMES A DAY
     Route: 048

REACTIONS (1)
  - Diabetes mellitus inadequate control [Recovered/Resolved]
